FAERS Safety Report 17376244 (Version 2)
Quarter: 2020Q1

REPORT INFORMATION
  Report Type: Report from Study
  Country: BR (occurrence: BR)
  Receive Date: 20200206
  Receipt Date: 20200316
  Transmission Date: 20200409
  Serious: Yes (Other)
  Sender: FDA-Public Use
  Company Number: BR-EMD SERONO-9143666

PATIENT
  Age: 10 Year
  Sex: Female

DRUGS (2)
  1. SAIZEN [Suspect]
     Active Substance: SOMATROPIN
     Indication: BODY HEIGHT BELOW NORMAL
     Dosage: EASYPOD BATCH NUMBER: 9071604271116407
     Route: 058
     Dates: start: 20160705, end: 202003
  2. SAIZEN [Suspect]
     Active Substance: SOMATROPIN
     Indication: DELAYED PUBERTY

REACTIONS (2)
  - Off label use [Recovered/Resolved]
  - Scoliosis [Unknown]

NARRATIVE: CASE EVENT DATE: 20160705
